FAERS Safety Report 9421266 (Version 2)
Quarter: 2014Q1

REPORT INFORMATION
  Report Type: Spontaneous
  Country: US (occurrence: US)
  Receive Date: 20130725
  Receipt Date: 20140103
  Transmission Date: 20141002
  Serious: Yes (Death, Hospitalization, Other)
  Sender: FDA-Public Use
  Company Number: US-B.I. PHARMACEUTICALS,INC./RIDGEFIELD-2013-BI-21985BP

PATIENT
  Sex: Female
  Weight: 67.13 kg

DRUGS (4)
  1. PRADAXA [Suspect]
     Dates: start: 20120914, end: 20121109
  2. DILANTIN [Concomitant]
  3. ARICEPT [Concomitant]
  4. PAIN PATCH [Concomitant]

REACTIONS (5)
  - Cardio-respiratory arrest [Fatal]
  - Pneumonia [Unknown]
  - Rectal haemorrhage [Unknown]
  - Iron deficiency anaemia [Unknown]
  - Urinary tract infection [Unknown]
